APPROVED DRUG PRODUCT: ATRACURIUM BESYLATE PRESERVATIVE FREE
Active Ingredient: ATRACURIUM BESYLATE
Strength: 10MG/ML
Dosage Form/Route: INJECTABLE;INJECTION
Application: A074825 | Product #001
Applicant: BAXTER HEALTHCARE CORP ANESTHESIA AND CRITICAL CARE
Approved: Sep 30, 1997 | RLD: No | RS: No | Type: DISCN